FAERS Safety Report 19195837 (Version 1)
Quarter: 2021Q2

REPORT INFORMATION
  Report Type: Spontaneous
  Country: US (occurrence: US)
  Receive Date: 20210429
  Receipt Date: 20210429
  Transmission Date: 20210717
  Serious: Yes (Other)
  Sender: FDA-Public Use
  Company Number: US-PURDUE-USA-2021-0248874

PATIENT
  Sex: Female

DRUGS (1)
  1. COLACE CLEAR [Suspect]
     Active Substance: DOCUSATE SODIUM
     Indication: PRODUCT USED FOR UNKNOWN INDICATION
     Route: 048

REACTIONS (5)
  - Wrong technique in product usage process [Unknown]
  - Product taste abnormal [Unknown]
  - Product use complaint [Unknown]
  - Throat irritation [Unknown]
  - Foreign body in throat [Recovered/Resolved]
